FAERS Safety Report 7783513-4 (Version None)
Quarter: 2011Q3

REPORT INFORMATION
  Report Type: 
  Country: None (occurrence: None)
  Receive Date: 20110928
  Receipt Date: 20110914
  Transmission Date: 20111222
  Serious: No
  Sender: FDA-Public Use
  Company Number: US-B.I. PHARMACEUTICALS,INC./RIDGEFIELD-2011-BP-19752BP

PATIENT
  Age: 38 Year
  Sex: Male

DRUGS (2)
  1. MIRAPEX [Suspect]
     Indication: PARKINSON'S DISEASE
     Dosage: 4.5 MG
  2. AZILECT [Concomitant]
     Dates: start: 20110509

REACTIONS (4)
  - VOMITING [None]
  - NAUSEA [None]
  - ADVERSE DRUG REACTION [None]
  - DIZZINESS [None]
